FAERS Safety Report 9221178 (Version 5)
Quarter: 2014Q2

REPORT INFORMATION
  Report Type: Spontaneous
  Country: PT (occurrence: PT)
  Receive Date: 20130409
  Receipt Date: 20140408
  Transmission Date: 20141212
  Serious: Yes (Death, Hospitalization, Other)
  Sender: FDA-Public Use
  Company Number: PT-BRISTOL-MYERS SQUIBB COMPANY-17427360

PATIENT
  Age: 40 Year
  Sex: Male
  Weight: 84.5 kg

DRUGS (1)
  1. YERVOY [Suspect]
     Indication: METASTATIC MALIGNANT MELANOMA
     Dosage: 250MG
     Route: 042
     Dates: start: 20130115

REACTIONS (10)
  - Death [Fatal]
  - General physical health deterioration [Unknown]
  - Generalised oedema [Unknown]
  - Asthenia [Recovering/Resolving]
  - Anaemia [Unknown]
  - Oedema peripheral [Unknown]
  - Diarrhoea [Not Recovered/Not Resolved]
  - Hypoalbuminaemia [Unknown]
  - Hypothyroidism [Unknown]
  - Dyspnoea [Unknown]
